FAERS Safety Report 24945096 (Version 1)
Quarter: 2025Q1

REPORT INFORMATION
  Report Type: Spontaneous
  Country: DZ (occurrence: DZ)
  Receive Date: 20250208
  Receipt Date: 20250208
  Transmission Date: 20250409
  Serious: Yes (Other)
  Sender: TEVA
  Company Number: DZ-TEVA-VS-3292997

PATIENT
  Sex: Female

DRUGS (1)
  1. TAXOL [Suspect]
     Active Substance: PACLITAXEL
     Indication: Ovarian cancer stage III
     Route: 042

REACTIONS (3)
  - Type I hypersensitivity [Unknown]
  - Cyanosis [Unknown]
  - Cardiac discomfort [Unknown]
